FAERS Safety Report 6007266-5 (Version None)
Quarter: 2008Q4

REPORT INFORMATION
  Report Type: 
  Country: None (occurrence: None)
  Receive Date: 20081217
  Receipt Date: 20080131
  Transmission Date: 20090506
  Serious: No
  Sender: FDA-Public Use
  Company Number: US-ASTRAZENECA-2008UW02370

PATIENT
  Age: 75 Year
  Sex: Male
  Weight: 83.9 kg

DRUGS (8)
  1. CRESTOR [Suspect]
     Indication: BLOOD CHOLESTEROL INCREASED
     Route: 048
  2. AMLODIPINE [Concomitant]
  3. ASPIRIN [Concomitant]
  4. CARVEDILOL [Concomitant]
  5. CHLORPHENIRAMINE MALEATE [Concomitant]
  6. GUAIFENESIN [Concomitant]
  7. OMEPRAZOLE [Concomitant]
  8. TEMAZEPAM [Concomitant]

REACTIONS (2)
  - ACCIDENTAL OVERDOSE [None]
  - DIZZINESS [None]
